FAERS Safety Report 18373006 (Version 1)
Quarter: 2020Q4

REPORT INFORMATION
  Report Type: Spontaneous
  Country: FR (occurrence: FR)
  Receive Date: 20201012
  Receipt Date: 20201012
  Transmission Date: 20210114
  Serious: Yes (Hospitalization)
  Sender: FDA-Public Use
  Company Number: FR-ABBVIE-20K-056-3605243-00

PATIENT
  Age: 70 Year
  Sex: Female

DRUGS (1)
  1. LOPINAVIR/RITONAVIR [Suspect]
     Active Substance: LOPINAVIR\RITONAVIR
     Indication: COVID-19
     Dosage: LOW DOSE OF RITONAVIR
     Route: 048

REACTIONS (2)
  - Off label use [Unknown]
  - Acute kidney injury [Unknown]
